FAERS Safety Report 24121721 (Version 1)
Quarter: 2024Q3

REPORT INFORMATION
  Report Type: Report from Study
  Country: IT (occurrence: IT)
  Receive Date: 20240722
  Receipt Date: 20240722
  Transmission Date: 20241017
  Serious: Yes (Other)
  Sender: TEVA
  Company Number: None

PATIENT
  Age: 73 Year
  Sex: Male
  Weight: 73 kg

DRUGS (3)
  1. EPIRUBICIN [Suspect]
     Active Substance: EPIRUBICIN
     Indication: Soft tissue neoplasm
     Dosage: 85 MG ADMINISTERED DAY 1 AND 2
     Route: 042
     Dates: start: 20240603, end: 20240604
  2. IFOSFAMIDE [Suspect]
     Active Substance: IFOSFAMIDE
     Indication: Soft tissue neoplasm
     Dosage: 4300 MG FOR 7 DAYS IN CONTINUOUS INFUSION
     Route: 042
     Dates: start: 20240603, end: 20240609
  3. MESNA [Suspect]
     Active Substance: MESNA
     Indication: Prophylaxis
     Dosage: 5000MG IN A 7 DAY CONTINUOUS INFUSION
     Route: 042
     Dates: start: 20240603, end: 20240609

REACTIONS (2)
  - Neutropenia [Recovered/Resolved]
  - Off label use [Recovered/Resolved]

NARRATIVE: CASE EVENT DATE: 20240619
